FAERS Safety Report 11121361 (Version 1)
Quarter: 2015Q2

REPORT INFORMATION
  Report Type: Report from Study
  Country: BR (occurrence: BR)
  Receive Date: 20150519
  Receipt Date: 20150519
  Transmission Date: 20150821
  Serious: Yes (Other)
  Sender: FDA-Public Use
  Company Number: PHHY2014BR125480

PATIENT
  Sex: Male
  Weight: 60 kg

DRUGS (7)
  1. ZIDER [Suspect]
     Active Substance: MEMANTINE HYDROCHLORIDE
     Indication: MEMORY IMPAIRMENT
     Dosage: 1 DF, BID (1 TABLET IN THE MORNING AND AT NIGHT)
     Route: 065
     Dates: start: 201405
  2. EXELON PATCH [Suspect]
     Active Substance: RIVASTIGMINE
     Indication: DEMENTIA ALZHEIMER^S TYPE
     Dosage: 1 DF QD (9 MG/5 CM2)
     Route: 062
     Dates: start: 201406
  3. EXELON PATCH [Suspect]
     Active Substance: RIVASTIGMINE
     Dosage: 1 DF(18 MG/10 CM2), DAILY
     Route: 062
  4. ALLOPURINOL. [Concomitant]
     Active Substance: ALLOPURINOL
     Indication: PAIN
  5. ALLOPURINOL. [Concomitant]
     Active Substance: ALLOPURINOL
     Indication: BLOOD URIC ACID ABNORMAL
     Dosage: 1 DF, DAILY (STOP DATE: SPORADIC USE)
     Route: 065
  6. EXELON [Suspect]
     Active Substance: RIVASTIGMINE TARTRATE
     Indication: DEMENTIA ALZHEIMER^S TYPE
     Dosage: 2 DF, QD
     Route: 065
     Dates: start: 201503
  7. CAPTOPRIL. [Concomitant]
     Active Substance: CAPTOPRIL
     Indication: HYPERTENSION
     Dosage: 1 DF, BID (1 TABLET IN THE MORNING AND AT NIGHT)
     Route: 065

REACTIONS (13)
  - Application site pruritus [Recovering/Resolving]
  - Erythema [Recovering/Resolving]
  - Application site hypersensitivity [Recovering/Resolving]
  - Skin discolouration [Recovering/Resolving]
  - Drug administration error [Unknown]
  - Dementia Alzheimer^s type [Recovering/Resolving]
  - Hypoglycaemia [Unknown]
  - Application site vesicles [Recovering/Resolving]
  - Diabetes mellitus [Recovering/Resolving]
  - Application site irritation [Recovering/Resolving]
  - Application site erythema [Recovering/Resolving]
  - Application site pain [Recovering/Resolving]
  - Weight decreased [Recovering/Resolving]
